FAERS Safety Report 7410010-8 (Version None)
Quarter: 2011Q2

REPORT INFORMATION
  Report Type: 
  Country: None (occurrence: None)
  Receive Date: 20110412
  Receipt Date: 20110330
  Transmission Date: 20111010
  Serious: Yes (Other)
  Sender: FDA-Public Use
  Company Number: SG-BAYER-2011-028581

PATIENT
  Age: 36 Year
  Sex: Male

DRUGS (1)
  1. ASPIRIN [Suspect]

REACTIONS (1)
  - PERIORBITAL OEDEMA [None]
